FAERS Safety Report 14499193 (Version 1)
Quarter: 2018Q1

REPORT INFORMATION
  Report Type: Spontaneous
  Country: US (occurrence: US)
  Receive Date: 20180207
  Receipt Date: 20180207
  Transmission Date: 20180509
  Serious: No
  Sender: FDA-Public Use
  Company Number: US-JAZZ-2017-US-007682

PATIENT
  Age: 57 Year
  Sex: Female
  Weight: 86.17 kg

DRUGS (12)
  1. PRIALT [Suspect]
     Active Substance: ZICONOTIDE ACETATE
     Dosage: .002?G, QH
     Route: 037
     Dates: start: 20170503
  2. LEXAPRO [Concomitant]
     Active Substance: ESCITALOPRAM OXALATE
  3. CYCLOBENZAPRINE HCL [Concomitant]
     Active Substance: CYCLOBENZAPRINE HYDROCHLORIDE
  4. NEURONTIN [Concomitant]
     Active Substance: GABAPENTIN
  5. VITAMIN D2 [Concomitant]
     Active Substance: ERGOCALCIFEROL
  6. IMITREX [Concomitant]
     Active Substance: SUMATRIPTAN SUCCINATE
  7. PRIALT [Suspect]
     Active Substance: ZICONOTIDE ACETATE
     Indication: SPINAL PAIN
     Dosage: 0.125?G, QH
     Route: 037
  8. QVAR [Concomitant]
     Active Substance: BECLOMETHASONE DIPROPIONATE
  9. CHLORTHALIDONE. [Concomitant]
     Active Substance: CHLORTHALIDONE
  10. PRIALT [Suspect]
     Active Substance: ZICONOTIDE ACETATE
     Dosage: .136?G, QH
     Route: 037
     Dates: start: 20170523
  11. LISINOPRIL. [Concomitant]
     Active Substance: LISINOPRIL
  12. OXYCONTIN [Concomitant]
     Active Substance: OXYCODONE HYDROCHLORIDE

REACTIONS (14)
  - Gait disturbance [Not Recovered/Not Resolved]
  - Insomnia [Not Recovered/Not Resolved]
  - Groin pain [Not Recovered/Not Resolved]
  - Sacroiliitis [Unknown]
  - Pain in extremity [Not Recovered/Not Resolved]
  - Post laminectomy syndrome [Unknown]
  - Neck pain [Unknown]
  - Wheezing [Unknown]
  - Arthralgia [Unknown]
  - Musculoskeletal pain [Not Recovered/Not Resolved]
  - Carpal tunnel syndrome [Unknown]
  - Paraesthesia [Not Recovered/Not Resolved]
  - Muscle spasms [Not Recovered/Not Resolved]
  - Neuritis [Unknown]

NARRATIVE: CASE EVENT DATE: 201705
